FAERS Safety Report 24384702 (Version 1)
Quarter: 2024Q4

REPORT INFORMATION
  Report Type: Spontaneous
  Country: CN (occurrence: CN)
  Receive Date: 20241001
  Receipt Date: 20241001
  Transmission Date: 20250115
  Serious: Yes (Hospitalization)
  Sender: BAXTER
  Company Number: None

PATIENT
  Age: 77 Year
  Sex: Female
  Weight: 46 kg

DRUGS (6)
  1. CYCLOPHOSPHAMIDE [Suspect]
     Active Substance: CYCLOPHOSPHAMIDE
     Indication: Lymphoma
     Dosage: 900 MG, ONE TIME IN ONE DAY, DILUTED WITH 50 ML OF 0.9% SODIUM CHLORIDE,START TIME: AT 10:50 (40 DRO
     Route: 041
     Dates: start: 20240720, end: 20240720
  2. SODIUM CHLORIDE [Suspect]
     Active Substance: SODIUM CHLORIDE
     Indication: Medication dilution
     Dosage: (0.9%) 50 ML, ONE TIME IN ONE DAY, USED TO DILUTE 900 MG OF CYCLOPHOSPHAMIDE, START TIME: AT 10:50 (
     Route: 041
     Dates: start: 20240720, end: 20240720
  3. SODIUM CHLORIDE [Suspect]
     Active Substance: SODIUM CHLORIDE
     Dosage: (0.9%) 40 ML, ONE TIME IN ONE DAY, USED TO DILUTE 1.8 MG OF VINCRISTINE SULFATE, START TIME: AT 11:2
     Route: 041
     Dates: start: 20240720, end: 20240720
  4. DEXTROSE [Suspect]
     Active Substance: DEXTROSE MONOHYDRATE
     Indication: Medication dilution
     Dosage: (5%) 50 ML, ONE TIME IN ONE DAY, USED TO DILUTE 50 MG OF PIRARUBICIN, START TIME: AT 11:12 (40 DROPS
     Route: 041
     Dates: start: 20240720, end: 20240720
  5. PIRARUBICIN HYDROCHLORIDE [Suspect]
     Active Substance: PIRARUBICIN HYDROCHLORIDE
     Indication: Lymphoma
     Dosage: 50 MG, ONE TIME IN ONE DAY, DILUTED WITH 50 ML OF 5% GLUCOSE, START TIME: AT 11:12 (40 DROPS/MIN)
     Route: 041
     Dates: start: 20240720, end: 20240720
  6. VINCRISTINE SULFATE [Suspect]
     Active Substance: VINCRISTINE SULFATE
     Indication: Lymphoma
     Dosage: 1.8 MG, ONE TIME IN ONE DAY, DILUTED WITH 40 ML OF 0.9% SODIUM CHLORIDE, START TIME: AT 11:29 (40 DR
     Route: 041
     Dates: start: 20240720, end: 20240720

REACTIONS (1)
  - White blood cell count decreased [Recovering/Resolving]

NARRATIVE: CASE EVENT DATE: 20240720
